FAERS Safety Report 22334382 (Version 1)
Quarter: 2023Q2

REPORT INFORMATION
  Report Type: Report from Study
  Country: US (occurrence: US)
  Receive Date: 20230517
  Receipt Date: 20230517
  Transmission Date: 20230722
  Serious: Yes (Other)
  Sender: FDA-Public Use
  Company Number: US-ABBVIE-4765771

PATIENT
  Sex: Female

DRUGS (2)
  1. HUMIRA [Suspect]
     Active Substance: ADALIMUMAB
     Indication: Product used for unknown indication
     Route: 058
  2. ENBREL [Suspect]
     Active Substance: ETANERCEPT
     Indication: Product used for unknown indication
     Route: 065

REACTIONS (9)
  - Arthrodesis [Unknown]
  - Carpal tunnel syndrome [Unknown]
  - Arthropathy [Unknown]
  - Therapeutic product effect decreased [Unknown]
  - Swelling [Unknown]
  - Surgery [Unknown]
  - Shoulder arthroplasty [Unknown]
  - Knee arthroplasty [Unknown]
  - Therapeutic product effect decreased [Unknown]
